FAERS Safety Report 9402866 (Version 3)
Quarter: 2013Q3

REPORT INFORMATION
  Report Type: Report from Study
  Country: US (occurrence: US)
  Receive Date: 20130716
  Receipt Date: 20130806
  Transmission Date: 20140515
  Serious: Yes (Hospitalization)
  Sender: FDA-Public Use
  Company Number: US-PFIZER INC-2013205358

PATIENT
  Age: 77 Year
  Sex: Female
  Weight: 58 kg

DRUGS (6)
  1. BLINDED CELECOXIB [Suspect]
     Indication: ADENOCARCINOMA OF COLON
     Dosage: 400MG STARTING ON DAY 1 OF CYCLE 2 OF FOLFOX CONTINUED TO 3 YEARS
     Route: 048
     Dates: start: 20130612, end: 20130617
  2. BLINDED PLACEBO [Suspect]
     Indication: ADENOCARCINOMA OF COLON
     Dosage: 400MG STARTING ON DAY 1 OF CYCLE 2 OF FOLFOX CONTINUED TO 3 YEARS
     Route: 048
     Dates: start: 20130612, end: 20130617
  3. FLUOROURACIL [Suspect]
     Indication: ADENOCARCINOMA OF COLON
     Dosage: 400MG/M2; IVP ON DAY 1 FOLLOWED BY
     Route: 042
     Dates: start: 20130531
  4. FLUOROURACIL [Suspect]
     Dosage: 2400MG/M2 OVER 46-48 HOURS ON DAY 1
     Route: 042
     Dates: start: 20130531, end: 20130628
  5. ELOXATIN [Suspect]
     Indication: ADENOCARCINOMA OF COLON
     Dosage: 85MG/M2; OVER 2 HOURS ON DAY 1
     Route: 042
     Dates: start: 20130531, end: 20130626
  6. LEUCOVORIN CALCIUM [Concomitant]
     Indication: ADENOCARCINOMA OF COLON
     Dosage: 400MG/M2; OVER 2 HOURS ON DAY 1
     Route: 042
     Dates: start: 20130531, end: 20130626

REACTIONS (6)
  - Myocardial infarction [Recovering/Resolving]
  - Diarrhoea [Recovering/Resolving]
  - Nausea [Recovering/Resolving]
  - Vomiting [Recovering/Resolving]
  - Small intestinal obstruction [Recovered/Resolved]
  - Anaemia [Unknown]
